FAERS Safety Report 15427377 (Version 19)
Quarter: 2022Q2

REPORT INFORMATION
  Report Type: Spontaneous
  Country: US (occurrence: US)
  Receive Date: 20180925
  Receipt Date: 20220417
  Transmission Date: 20220721
  Serious: Yes (Hospitalization, Other)
  Sender: FDA-Public Use
  Company Number: US-SA-2018SA266416

PATIENT
  Age: 46 Year
  Sex: Male
  Weight: 60 kg

DRUGS (6)
  1. FABRAZYME [Suspect]
     Active Substance: AGALSIDASE BETA
     Indication: Fabry^s disease
     Dosage: 75 MG, QW
     Route: 041
     Dates: start: 20151022, end: 201510
  2. FABRAZYME [Suspect]
     Active Substance: AGALSIDASE BETA
     Dosage: 10 MG, QW
     Route: 041
     Dates: start: 201510
  3. FABRAZYME [Suspect]
     Active Substance: AGALSIDASE BETA
     Dosage: 70 MG, QOW
     Route: 041
     Dates: end: 202011
  4. FABRAZYME [Suspect]
     Active Substance: AGALSIDASE BETA
     Dosage: 75 MG, QW
     Route: 041
     Dates: start: 2020, end: 2022
  5. FABRAZYME [Suspect]
     Active Substance: AGALSIDASE BETA
     Dosage: 75 MG, QW
     Route: 041
     Dates: start: 20220210
  6. FABRAZYME [Suspect]
     Active Substance: AGALSIDASE BETA
     Dosage: 60 MG QW
     Route: 041
     Dates: start: 20201222

REACTIONS (14)
  - Lower limb fracture [Unknown]
  - Myocardial infarction [Unknown]
  - Hospitalisation [Unknown]
  - Heart valve replacement [Unknown]
  - Weight increased [Unknown]
  - Migraine [Not Recovered/Not Resolved]
  - Gastric disorder [Unknown]
  - Illness [Unknown]
  - Weight decreased [Not Recovered/Not Resolved]
  - Suspected COVID-19 [Unknown]
  - Malaise [Unknown]
  - Product dose omission issue [Unknown]
  - Product use issue [Unknown]
  - Intentional dose omission [Unknown]

NARRATIVE: CASE EVENT DATE: 20151022
